FAERS Safety Report 24415126 (Version 1)
Quarter: 2024Q4

REPORT INFORMATION
  Report Type: Spontaneous
  Country: US (occurrence: US)
  Receive Date: 20241009
  Receipt Date: 20241009
  Transmission Date: 20250115
  Serious: No
  Sender: JOHNSON AND JOHNSON
  Company Number: US-JNJFOC-20241016031

PATIENT
  Age: 72 Year
  Sex: Female

DRUGS (29)
  1. IMODIUM A-D [Suspect]
     Active Substance: LOPERAMIDE HYDROCHLORIDE
     Indication: Diarrhoea
     Dosage: TAKE 1 ONE ( 2MG TOTAL) BY MOUTH 4 (FOUR) TIMES A DAY AS NEEDED FOR DIARRHEA- ORAL
     Route: 048
  2. TYLENOL EXTRA STRENGTH [Suspect]
     Active Substance: ACETAMINOPHEN
     Indication: Cancer pain
     Dosage: 1 (ONE) TABLET (500 MG TOTAL) BY MOUTH EVERY 6 (SIX) HOURS AS NEEDED
     Route: 048
  3. ZESTRIL [Concomitant]
     Active Substance: LISINOPRIL
     Indication: Product used for unknown indication
     Dosage: TAKE 1 (ONE) TABLET ( 40 MG TOTAL) BY MOUTH DAILY- ORAL
     Route: 048
  4. IBRANCE [Concomitant]
     Active Substance: PALBOCICLIB
     Indication: Breast cancer metastatic
     Dosage: 125 MG / DAILY
     Route: 048
     Dates: start: 20230215
  5. IBRANCE [Concomitant]
     Active Substance: PALBOCICLIB
     Dosage: 100 MG / DAILY
     Route: 048
     Dates: start: 20230424
  6. IBRANCE [Concomitant]
     Active Substance: PALBOCICLIB
     Dosage: TAKE 1 (ONE) TABLET (75 MG TOTAL) BY MOUTH DAILY WITH FOOD TAKE FOR 21 DAYS , THEN OFF FOR 7 DAYS- O
     Route: 048
     Dates: start: 20231106, end: 20231106
  7. FASLODEX [Concomitant]
     Active Substance: FULVESTRANT
     Indication: Breast cancer
     Dosage: INJECT 10 ML (500 MG TOTAL) INTO THE SHOULDER, THIGH, OR BUTTOCKS EVERY 30 (THIRTY) DAYS- INTRAMUSCU
     Route: 030
  8. ERYTHROPOIETIN [Concomitant]
     Active Substance: ERYTHROPOIETIN
     Indication: Anaemia
     Dosage: 60000 UNITS
     Route: 065
  9. GABAPENTIN [Concomitant]
     Active Substance: GABAPENTIN
     Indication: Neuropathy peripheral
     Dosage: TAKE 1 (ONE) CAPSULE (300 MG TOTAL) BY MOUTH AT BEDTIME (DAYS SUPPLY PER FILL: 30)- ORAL
     Route: 048
  10. AMLODIPINE BENZOATE [Concomitant]
     Active Substance: AMLODIPINE BENZOATE
     Dosage: TAKE 5 MG BY MOUTH DAILY - ORAL
     Route: 048
  11. ASPIRIN [Concomitant]
     Active Substance: ASPIRIN
     Indication: Product used for unknown indication
     Dosage: TAKE 1 (ONE) TABLET (81 MG TOTAL) BY MOUTH DAILY
     Route: 048
  12. LIPITOR [Concomitant]
     Active Substance: ATORVASTATIN CALCIUM
     Indication: Product used for unknown indication
     Dosage: TAKE 1 (ONE) TABLET (40 MG TOTAL) BY MOUTH DAILY- ORAL
     Route: 048
     Dates: start: 20161116
  13. COREG [Concomitant]
     Active Substance: CARVEDILOL
     Indication: Product used for unknown indication
     Dosage: TAKE 1 (ONE) TABLET (25 MG TOTAL) BY MOUTH ONCE DAILY- ORAL
     Route: 048
  14. KLONOPIN [Concomitant]
     Active Substance: CLONAZEPAM
     Indication: Product used for unknown indication
     Dosage: TAKE 1 (ONE) TABLET (1 MG TOTAL) BY MOUTH 3 (THREE) TIMES A DAY (DAYS SUPPLY PER FILL: 90)- ORAL
     Route: 048
  15. WELCHOL [Concomitant]
     Active Substance: COLESEVELAM HYDROCHLORIDE
     Indication: Product used for unknown indication
     Dosage: TAKE 2 (TWO) TABLETS (1,250 MG TOTAL) BY MOUTH 2 (TWO) TIMES A DAY WITH MEALS- ORAL
     Route: 048
  16. XGEVA [Concomitant]
     Active Substance: DENOSUMAB
     Indication: Product used for unknown indication
     Dosage: INJECT 1.7 ML (120 MG TOTAL) UNDER THE SKIN EVERY 3 (THREE) MONTHS- SUBCUTANEOUS
     Route: 058
  17. TRULICITY [Concomitant]
     Active Substance: DULAGLUTIDE
     Indication: Product used for unknown indication
     Dosage: INJECT 0.5 ML UNDER THE SKIN ONCE A WEEK- SUBCUTANEOUS
     Route: 058
  18. LIDODERM [Concomitant]
     Active Substance: LIDOCAINE
     Indication: Product used for unknown indication
     Dosage: PLACE 1 (ONE) PATCH ON THE SKIN DAILY. REMOVE + DISCARD PATCH WITHIN 12 HOURS OR AS DIRECTED BY MD F
     Route: 061
     Dates: start: 20221013
  19. PRINIL [LISINOPRIL] [Concomitant]
     Indication: Product used for unknown indication
     Dosage: TAKE 1 (ONE) TABLET ( 40 MG TOTAL) BY MOUTH DAILY- ORAL
     Route: 048
  20. ATIVAN [Concomitant]
     Active Substance: LORAZEPAM
     Indication: Product used for unknown indication
     Dosage: TAKE 1 TABLET (0.5 MG) 1 HOUR PRIOR TO SCAN TAKE 1 TABLET AT START OF SCAN ( DAYS SUPPLY PER FILLS 1
     Dates: start: 20240104, end: 20240822
  21. SKELAXIN [Concomitant]
     Active Substance: METAXALONE
     Indication: Muscle spasms
     Dosage: TAKE 1 (ONE) TABLE (800 MG TOTAL) BY MOUTH 3 (THREE)TIMES A DAY AS NEEDED FOR MUSCLE SPASMS- ORAL
     Route: 048
  22. GLUCOPHAGE [Concomitant]
     Active Substance: METFORMIN HYDROCHLORIDE
     Indication: Product used for unknown indication
     Dosage: TAKE 1 (ONE) (TABLET 500 MG TOTAL) BY MOUTH ONCE DAILY - ORAL
     Route: 048
  23. ACTOS [Concomitant]
     Active Substance: PIOGLITAZONE HYDROCHLORIDE
     Indication: Product used for unknown indication
     Dosage: TAKE 1 (ONE) TABLET (30 MG) BY MOUTH DAILY- ORAL
     Route: 048
     Dates: start: 20160816
  24. ULTRAM [Concomitant]
     Active Substance: TRAMADOL HYDROCHLORIDE
     Indication: Pain
     Dosage: TAKE 1 (ONE) TABLET (50 MG TOTAL) BY MOUTH AT BEDTIME AS NEEDED FOR PAIN (DAYS SUPPLY PER FILL 30) -
     Route: 048
     Dates: start: 20240726, end: 20240822
  25. PIOGLITAZONE [Concomitant]
     Active Substance: PIOGLITAZONE
     Indication: Product used for unknown indication
     Route: 065
  26. LORAZEPAM [Concomitant]
     Active Substance: LORAZEPAM
     Indication: Product used for unknown indication
     Route: 065
  27. INSULIN GLARGINE [Concomitant]
     Active Substance: INSULIN GLARGINE
     Indication: Product used for unknown indication
     Route: 065
  28. COLESEVELAM [Concomitant]
     Active Substance: COLESEVELAM
     Indication: Product used for unknown indication
     Route: 065
  29. CLONAZEPAM [Concomitant]
     Active Substance: CLONAZEPAM
     Indication: Product used for unknown indication
     Route: 065

REACTIONS (1)
  - Off label use [Unknown]
